FAERS Safety Report 6524392-2 (Version None)
Quarter: 2010Q1

REPORT INFORMATION
  Report Type: 
  Country: None (occurrence: None)
  Receive Date: 20100101
  Receipt Date: 20091221
  Transmission Date: 20100710
  Serious: Yes (Hospitalization, Other)
  Sender: FDA-Public Use
  Company Number: GB-RANBAXY-2007RR-09682

PATIENT
  Age: 70 Year
  Sex: Male

DRUGS (3)
  1. IBUPROFEN [Suspect]
     Dosage: 12 G, UNK
  2. CHLORPHENIRAMINE MALEATE [Concomitant]
  3. DIAZEPAM [Concomitant]

REACTIONS (5)
  - COMA [None]
  - DRUG TOXICITY [None]
  - HYPOTENSION [None]
  - LOSS OF CONSCIOUSNESS [None]
  - OVERDOSE [None]
